FAERS Safety Report 7700669-X (Version None)
Quarter: 2011Q3

REPORT INFORMATION
  Report Type: 
  Country: None (occurrence: None)
  Receive Date: 20110822
  Receipt Date: 20110822
  Transmission Date: 20111222
  Serious: Yes (Other)
  Sender: FDA-Public Use
  Company Number: None

PATIENT
  Age: 49 Year
  Sex: Female
  Weight: 55.338 kg

DRUGS (1)
  1. CIPROFLOXACIN HCL [Suspect]
     Indication: URINARY TRACT INFECTION
     Dates: start: 20110819, end: 20110822

REACTIONS (6)
  - HEADACHE [None]
  - DYSPHAGIA [None]
  - GROIN PAIN [None]
  - INSOMNIA [None]
  - NODULE [None]
  - HYPOAESTHESIA [None]
